FAERS Safety Report 25390968 (Version 2)
Quarter: 2025Q2

REPORT INFORMATION
  Report Type: Spontaneous
  Country: JP (occurrence: JP)
  Receive Date: 20250603
  Receipt Date: 20250617
  Transmission Date: 20250717
  Serious: Yes (Hospitalization)
  Sender: UCB
  Company Number: JP-UCBJ-CD202507050UCBPHAPROD

PATIENT
  Age: 8 Year
  Sex: Female

DRUGS (1)
  1. VIMPAT [Suspect]
     Active Substance: LACOSAMIDE
     Indication: Product used for unknown indication
     Dosage: 140 MILLIGRAM, 2X/DAY (BID)
     Route: 048

REACTIONS (1)
  - Ear, nose and throat disorder [Recovered/Resolved]
